FAERS Safety Report 10445363 (Version 2)
Quarter: 2014Q3

REPORT INFORMATION
  Report Type: Spontaneous
  Country: FR (occurrence: FR)
  Receive Date: 20140910
  Receipt Date: 20140919
  Transmission Date: 20150326
  Serious: Yes (Hospitalization, Other)
  Sender: FDA-Public Use
  Company Number: FR-GLAXOSMITHKLINE-B1029980A

PATIENT
  Age: 62 Year
  Sex: Female

DRUGS (14)
  1. LASILIX [Suspect]
     Active Substance: FUROSEMIDE
     Indication: OEDEMA PERIPHERAL
     Dates: start: 20140410, end: 20140612
  2. EZETROL [Concomitant]
     Active Substance: EZETIMIBE
  3. BACTRIM [Suspect]
     Active Substance: SULFAMETHOXAZOLE\TRIMETHOPRIM
     Indication: INFECTION PROPHYLAXIS
     Dosage: .5UNIT TWICE PER DAY
     Route: 048
     Dates: start: 20140424, end: 20140517
  4. CALCIDIA [Concomitant]
     Active Substance: CALCIUM POLYCARBOPHIL
  5. LEVOTHYROXINE SODIUM. [Concomitant]
     Active Substance: LEVOTHYROXINE SODIUM
  6. ORACILLIN [Suspect]
     Active Substance: PENICILLIN V BENZATHINE
     Indication: PROPHYLAXIS
     Route: 048
     Dates: start: 20140416, end: 20140517
  7. ALKERAN [Suspect]
     Active Substance: MELPHALAN
     Indication: RENAL AMYLOIDOSIS
     Dosage: 18MG PER DAY
     Route: 048
     Dates: start: 20140417, end: 20140420
  8. DIFFU K [Concomitant]
     Active Substance: POTASSIUM CHLORIDE
  9. INEXIUM [Concomitant]
     Active Substance: ESOMEPRAZOLE
  10. ZELITREX [Suspect]
     Active Substance: VALACYCLOVIR HYDROCHLORIDE
     Indication: ANTIVIRAL PROPHYLAXIS
     Dosage: 500MG TWICE PER DAY
     Route: 048
     Dates: start: 20140417
  11. DEXAMETHASONE. [Suspect]
     Active Substance: DEXAMETHASONE
     Indication: RENAL AMYLOIDOSIS
     Dosage: 40MG PER DAY
     Route: 048
     Dates: start: 20140417, end: 20140420
  12. MODAMIDE [Suspect]
     Active Substance: AMILORIDE HYDROCHLORIDE
     Indication: OEDEMA PERIPHERAL
     Route: 048
     Dates: start: 20140412, end: 20140517
  13. COUMADINE [Suspect]
     Active Substance: WARFARIN SODIUM
     Indication: THROMBOSIS PROPHYLAXIS
     Dosage: 2MG TWICE PER DAY
     Route: 048
     Dates: start: 20140416
  14. LETROZOLE. [Concomitant]
     Active Substance: LETROZOLE

REACTIONS (2)
  - Renal tubular disorder [Not Recovered/Not Resolved]
  - Renal failure acute [Not Recovered/Not Resolved]

NARRATIVE: CASE EVENT DATE: 20140418
